FAERS Safety Report 4386838-8 (Version None)
Quarter: 2004Q2

REPORT INFORMATION
  Report Type: 
  Country: None (occurrence: None)
  Receive Date: 20040628
  Receipt Date: 20040628
  Transmission Date: 20050107
  Serious: No
  Sender: FDA-Public Use
  Company Number: None

PATIENT
  Sex: Male
  Weight: 36.2878 kg

DRUGS (3)
  1. VELCADE [Suspect]
     Indication: MULTIPLE MYELOMA
     Dosage: 2.6 MG 2X /WK IV
     Route: 042
     Dates: start: 20040209, end: 20040510
  2. GATIFLOXACIN [Suspect]
     Indication: BRONCHITIS
     Dosage: 400 MG QD ORAL
     Route: 048
     Dates: start: 20040410, end: 20040419
  3. GATIFLOXACIN [Suspect]
     Indication: PNEUMONIA
     Dosage: 400 MG QD ORAL
     Route: 048
     Dates: start: 20040410, end: 20040419

REACTIONS (5)
  - ASTHENIA [None]
  - BLOOD PRESSURE DECREASED [None]
  - BRONCHITIS [None]
  - DIARRHOEA [None]
  - PNEUMONIA [None]
